FAERS Safety Report 12806053 (Version 1)
Quarter: 2016Q4

REPORT INFORMATION
  Report Type: Report from Study
  Country: US (occurrence: US)
  Receive Date: 20161004
  Receipt Date: 20161004
  Transmission Date: 20170207
  Serious: Yes (Other)
  Sender: FDA-Public Use
  Company Number: US-ASTELLAS-2016US038413

PATIENT
  Weight: 1 kg

DRUGS (1)
  1. TACROLIMUS. [Suspect]
     Active Substance: TACROLIMUS
     Indication: FOETAL EXPOSURE DURING PREGNANCY
     Dosage: 3-4 MG, TWICE DAILY
     Route: 064

REACTIONS (2)
  - Low birth weight baby [Unknown]
  - Premature baby [Unknown]
